FAERS Safety Report 9079793 (Version 1)
Quarter: 2013Q1

REPORT INFORMATION
  Report Type: Spontaneous
  Country: DE (occurrence: DE)
  Receive Date: 20130130
  Receipt Date: 20130130
  Transmission Date: 20140127
  Serious: Yes (Other)
  Sender: FDA-Public Use
  Company Number: DE-MYLANLABS-2013S1001338

PATIENT
  Age: 0 Year
  Sex: Male
  Weight: 3.86 kg

DRUGS (3)
  1. SERTRALINE [Suspect]
     Dosage: 50 [MG/D ]
     Route: 064
  2. SERTRALINE [Suspect]
     Route: 063
  3. FOLIC ACID [Concomitant]
     Indication: PROPHYLAXIS OF NEURAL TUBE DEFECT
     Dosage: 0-38.2 GESTATIONAL WEEK
     Route: 064

REACTIONS (3)
  - Exposure during pregnancy [Recovered/Resolved]
  - Exposure during breast feeding [Recovered/Resolved]
  - Agitation neonatal [Recovered/Resolved]
